FAERS Safety Report 7479805-9 (Version None)
Quarter: 2011Q2

REPORT INFORMATION
  Report Type: 
  Country: None (occurrence: None)
  Receive Date: 20110513
  Receipt Date: 20110506
  Transmission Date: 20111010
  Serious: Yes (Other)
  Sender: FDA-Public Use
  Company Number: US-GENENTECH-301907

PATIENT
  Sex: Female
  Weight: 76 kg

DRUGS (7)
  1. LOVAZA [Concomitant]
     Indication: PROPHYLAXIS
     Dosage: UNK
     Route: 048
  2. XOLAIR [Suspect]
     Indication: ASTHMA
     Dosage: 150 MG, UNK
     Route: 030
     Dates: start: 20100326, end: 20100326
  3. ADVAIR DISKUS 100/50 [Concomitant]
     Indication: ASTHMA
     Dosage: 1 UNK, BID
  4. DUONEB [Concomitant]
     Indication: ASTHMA
     Dosage: UNK
  5. IMMUNE GLOBULIN INTRAVENOUS (HUMAN) [Concomitant]
     Indication: BLOOD IMMUNOGLOBULIN G DECREASED
     Dosage: UNK
     Route: 042
     Dates: start: 20100101
  6. SINGULAIR [Concomitant]
     Indication: ASTHMA
     Dosage: 10 MG, QD
  7. CENTRUM [Concomitant]
     Indication: PRODUCT USED FOR UNKNOWN INDICATION
     Dosage: UNK
     Route: 048

REACTIONS (1)
  - ANAPHYLACTIC REACTION [None]
